FAERS Safety Report 7780084-3 (Version None)
Quarter: 2011Q3

REPORT INFORMATION
  Report Type: 
  Country: None (occurrence: None)
  Receive Date: 20110922
  Receipt Date: 20110913
  Transmission Date: 20111222
  Serious: Yes (Death)
  Sender: FDA-Public Use
  Company Number: VAL_00605_2011

PATIENT
  Sex: Female

DRUGS (11)
  1. OMEPRAZOLE [Concomitant]
  2. FERROUS GLUCONATE [Concomitant]
  3. CINACALCET [Concomitant]
  4. METOPROLOL TARTRATE [Concomitant]
  5. DALTEPARINE-DALTEPARINE SODIUM [Concomitant]
  6. NOVOMIX [Concomitant]
  7. BEMIPARIN SODIUM [Concomitant]
  8. CALCITRIOL [Suspect]
     Indication: NEPHROGENIC ANAEMIA
     Dosage: (0.25 ?G)
     Dates: start: 20101102
  9. METHOXY POLYETHYLENE GLYCOL-EPOETIN BETA (METHOXY POLYETHYLENE GLYCOL- [Suspect]
     Indication: NEPHROGENIC ANAEMIA
     Dosage: (60 ?G, 1 X PER 1 MONTH INTRAVENOUS (NOT OTHERWISE SPCITIED))
     Route: 042
     Dates: start: 20090331
  10. FUROSEMIDE [Concomitant]
  11. BISOPROLOL [Concomitant]

REACTIONS (1)
  - URINARY TRACT INFECTION [None]
